FAERS Safety Report 10630629 (Version 1)
Quarter: 2014Q4

REPORT INFORMATION
  Report Type: Spontaneous
  Country: SE (occurrence: None)
  Receive Date: 20141203
  Receipt Date: 20141203
  Transmission Date: 20150529
  Serious: Yes (Death)
  Sender: FDA-Public Use
  Company Number: 2644782

PATIENT
  Age: 81 Year
  Sex: Female

DRUGS (1)
  1. CARBOPLATIN. [Suspect]
     Active Substance: CARBOPLATIN
     Indication: PRODUCT USED FOR UNKNOWN INDICATION

REACTIONS (4)
  - Hypocalcaemia [None]
  - Myocardial infarction [None]
  - Hypomagnesaemia [None]
  - Hypokalaemia [None]
